FAERS Safety Report 23588474 (Version 1)
Quarter: 2024Q1

REPORT INFORMATION
  Report Type: Spontaneous
  Country: IN (occurrence: IN)
  Receive Date: 20240302
  Receipt Date: 20240302
  Transmission Date: 20240409
  Serious: Yes (Hospitalization, Other)
  Sender: FDA-Public Use
  Company Number: IN-MLMSERVICE-20240213-4823531-1

PATIENT
  Age: 46 Year
  Sex: Female

DRUGS (2)
  1. HYDROXYCHLOROQUINE [Suspect]
     Active Substance: HYDROXYCHLOROQUINE
     Indication: Rheumatoid arthritis
  2. AZATHIOPRINE [Suspect]
     Active Substance: AZATHIOPRINE
     Indication: Rheumatoid arthritis

REACTIONS (4)
  - Type 2 lepra reaction [Recovering/Resolving]
  - Disability [Recovering/Resolving]
  - Lepromatous leprosy [Recovering/Resolving]
  - Phaeohyphomycosis [Recovering/Resolving]
